FAERS Safety Report 5150060-8 (Version None)
Quarter: 2006Q4

REPORT INFORMATION
  Report Type: 
  Country: None (occurrence: None)
  Receive Date: 20061113
  Receipt Date: 20061026
  Transmission Date: 20070319
  Serious: Yes (Other)
  Sender: FDA-Public Use
  Company Number: CA-ABBOTT-06P-028-0348413-00

PATIENT
  Sex: Female
  Weight: 79.45 kg

DRUGS (7)
  1. SYNTHROID [Suspect]
     Indication: HYPOTHYROIDISM
     Route: 048
     Dates: start: 19920101, end: 20060805
  2. SYNTHROID [Suspect]
     Indication: BLOOD THYROID STIMULATING HORMONE
     Route: 048
     Dates: start: 20060806
  3. SYNTHROID [Suspect]
     Route: 048
  4. SYNTHROID [Suspect]
     Route: 048
  5. CIMICIFUGA RACEMOSA ROOT [Interacting]
     Indication: HOT FLUSH
     Route: 048
     Dates: start: 20060501, end: 20060801
  6. CIMICIFUGA RACEMOSA ROOT [Interacting]
     Indication: MENOPAUSE
  7. ESTROGENS CONJUGATED [Concomitant]
     Indication: DRUG USE FOR UNKNOWN INDICATION
     Route: 048
     Dates: start: 20060901

REACTIONS (7)
  - ASTHENIA [None]
  - CHEST PAIN [None]
  - DRUG INTERACTION [None]
  - DYSPNOEA [None]
  - PALPITATIONS [None]
  - THYROTOXIC CRISIS [None]
  - THYROXINE FREE ABNORMAL [None]
